FAERS Safety Report 13842042 (Version 1)
Quarter: 2017Q3

REPORT INFORMATION
  Report Type: Report from Study
  Country: US (occurrence: US)
  Receive Date: 20170807
  Receipt Date: 20170807
  Transmission Date: 20171127
  Serious: No
  Sender: FDA-Public Use
  Company Number: US-AMGEN-USASL2017084957

PATIENT
  Age: 32 Year
  Sex: Female

DRUGS (1)
  1. NPLATE [Suspect]
     Active Substance: ROMIPLOSTIM
     Indication: IMMUNE THROMBOCYTOPENIC PURPURA
     Dosage: 250 MUG, (EVERY 12 DAYS)
     Route: 065
     Dates: end: 201704

REACTIONS (8)
  - Drug effect decreased [Unknown]
  - Anxiety [Unknown]
  - Platelet count abnormal [Unknown]
  - Fatigue [Unknown]
  - Platelet count decreased [Unknown]
  - Somnolence [Unknown]
  - Off label use [Unknown]
  - Petechiae [Unknown]
